FAERS Safety Report 16895360 (Version 1)
Quarter: 2019Q4

REPORT INFORMATION
  Report Type: Spontaneous
  Country: US (occurrence: US)
  Receive Date: 20191007
  Receipt Date: 20191007
  Transmission Date: 20200122
  Serious: Yes (Death)
  Sender: FDA-Public Use
  Company Number: None

PATIENT
  Age: 15 Year
  Sex: Male

DRUGS (7)
  1. VIMPAT 10MG/ML [Concomitant]
  2. RANITIDINE 15MG/ML [Concomitant]
  3. CLONAZEPAM ODT 0.25MG [Concomitant]
  4. FYCOMPA 100MG/ML [Concomitant]
  5. EPIDIOLEX [Suspect]
     Active Substance: CANNABIDIOL
     Indication: EPILEPSY
     Dosage: ?          OTHER ROUTE:GASTRIC TUBE?
     Dates: start: 20190906, end: 20190923
  6. ATIVAN 2MG/ML [Concomitant]
  7. PREDNISOLONE 15MG/5ML [Concomitant]

REACTIONS (1)
  - Death [None]

NARRATIVE: CASE EVENT DATE: 20190923
